FAERS Safety Report 21128638 (Version 1)
Quarter: 2022Q3

REPORT INFORMATION
  Report Type: Spontaneous
  Country: CA (occurrence: CA)
  Receive Date: 20220725
  Receipt Date: 20220725
  Transmission Date: 20221027
  Serious: Yes (Hospitalization, Other)
  Sender: FDA-Public Use
  Company Number: CA-SA-SAC20220721001376

PATIENT
  Age: 66 Year
  Sex: Female
  Weight: 94 kg

DRUGS (11)
  1. LOVENOX [Suspect]
     Active Substance: ENOXAPARIN SODIUM
     Indication: Pulmonary embolism
     Dosage: 120 MG, BID
     Route: 058
  2. ACETAMINOPHEN [Concomitant]
     Active Substance: ACETAMINOPHEN
  3. GLYCERIN SUPPOSITORIES [Concomitant]
  4. HYDROCORTISONE [Concomitant]
     Active Substance: HYDROCORTISONE
  5. LEVOTHYROXINE SODIUM [Concomitant]
     Active Substance: LEVOTHYROXINE SODIUM
  6. NOREPINEPHRINE [Concomitant]
     Active Substance: NOREPINEPHRINE
  7. ONDANSETRON [Concomitant]
     Active Substance: ONDANSETRON
  8. PANTOPRAZOLE [Concomitant]
     Active Substance: PANTOPRAZOLE
  9. PREDNISONE [Concomitant]
     Active Substance: PREDNISONE
  10. ALBUTEROL [Concomitant]
     Active Substance: ALBUTEROL
  11. SODIUM PHOSPHATE [Concomitant]
     Active Substance: SODIUM PHOSPHATE

REACTIONS (5)
  - Anaemia [Recovered/Resolved]
  - Abdominal wall haemorrhage [Recovered/Resolved]
  - Arterial haemorrhage [Recovered/Resolved]
  - Epistaxis [Recovered/Resolved]
  - Haematoma [Recovered/Resolved]
